FAERS Safety Report 6614809-7 (Version None)
Quarter: 2010Q1

REPORT INFORMATION
  Report Type: 
  Country: None (occurrence: None)
  Receive Date: 20100305
  Receipt Date: 20100303
  Transmission Date: 20100710
  Serious: Yes (Death, Hospitalization)
  Sender: FDA-Public Use
  Company Number: US-ASTRAZENECA-2010SE09195

PATIENT
  Age: 285 Month
  Sex: Male

DRUGS (2)
  1. SEROQUEL [Suspect]
     Indication: SCHIZOPHRENIA
     Route: 048
     Dates: start: 20031101
  2. RISPERIDONE [Suspect]
     Dates: start: 20090223

REACTIONS (8)
  - ASTHENIA [None]
  - CARDIOMYOPATHY [None]
  - CONGESTIVE CARDIOMYOPATHY [None]
  - DECREASED APPETITE [None]
  - HEPATIC ENZYME INCREASED [None]
  - LOSS OF CONSCIOUSNESS [None]
  - PNEUMONIA [None]
  - SCHIZOPHRENIA [None]
